FAERS Safety Report 5711987-9 (Version None)
Quarter: 2008Q2

REPORT INFORMATION
  Report Type: 
  Country: None (occurrence: None)
  Receive Date: 20080421
  Receipt Date: 20080417
  Transmission Date: 20081010
  Serious: Yes (Hospitalization)
  Sender: FDA-Public Use
  Company Number: DE-GENENTECH-259548

PATIENT
  Sex: Female

DRUGS (1)
  1. EFALIZUMAB [Suspect]
     Indication: PSORIASIS
     Dosage: 0.4 ML, 1/WEEK
     Route: 058
     Dates: start: 20070402, end: 20080205

REACTIONS (1)
  - COLON CANCER [None]
